FAERS Safety Report 13470250 (Version 1)
Quarter: 2017Q2

REPORT INFORMATION
  Report Type: Spontaneous
  Country: US (occurrence: US)
  Receive Date: 20170421
  Receipt Date: 20170421
  Transmission Date: 20170830
  Serious: No
  Sender: FDA-Public Use
  Company Number: None

PATIENT
  Sex: Female

DRUGS (1)
  1. SUTENT [Suspect]
     Active Substance: SUNITINIB MALATE
     Indication: MALAISE
     Dosage: 25MG DAILY FOR 2 DAYS ON, 1 DAY OFF PO
     Route: 048
     Dates: start: 20120816

REACTIONS (1)
  - Contusion [None]
